FAERS Safety Report 7917300-0 (Version None)
Quarter: 2011Q4

REPORT INFORMATION
  Report Type: 
  Country: None (occurrence: None)
  Receive Date: 20111116
  Receipt Date: 20111108
  Transmission Date: 20120403
  Serious: Yes (Hospitalization, Other)
  Sender: FDA-Public Use
  Company Number: PHHY2011JP71020

PATIENT
  Sex: Female
  Weight: 49 kg

DRUGS (10)
  1. TS 1 [Concomitant]
     Dosage: 40 MG, UNK
     Route: 048
  2. ZOMETA [Suspect]
     Dosage: 4 MG,PER ADMINISTRATION
     Route: 041
     Dates: start: 20090602, end: 20110517
  3. FLUOROURACIL [Concomitant]
     Indication: BREAST CANCER
     Dates: start: 20090310, end: 20090602
  4. GEMZAR [Concomitant]
     Indication: BREAST CANCER
     Dates: start: 20110816, end: 20110913
  5. EPIRUBICIN HYDROCHLORIDE [Concomitant]
     Indication: BREAST CANCER
     Dates: start: 20090310, end: 20090602
  6. ZOMETA [Suspect]
     Indication: METASTASES TO BONE
     Dosage: 4 MG PER ADMINISTRATION
     Route: 041
     Dates: start: 20081120, end: 20090223
  7. CYCLOPHOSPHAMIDE [Concomitant]
     Indication: BREAST CANCER
     Dates: start: 20090310, end: 20090620
  8. TS 1 [Concomitant]
     Dosage: 40 MG, UNK
     Route: 048
     Dates: end: 20110716
  9. TAXOTERE [Concomitant]
     Indication: BREAST CANCER
     Dates: start: 20090623, end: 20091102
  10. TS 1 [Concomitant]
     Indication: BREAST CANCER
     Dosage: 40 MG,
     Route: 048
     Dates: start: 20101130

REACTIONS (14)
  - BONE DENSITY INCREASED [None]
  - HAEMOGLOBIN DECREASED [None]
  - PALATITIS [None]
  - PAIN [None]
  - MYOCARDIAL INFARCTION [None]
  - OSTEOMYELITIS [None]
  - GINGIVITIS [None]
  - GINGIVAL SWELLING [None]
  - RED BLOOD CELL COUNT DECREASED [None]
  - ANAEMIA [None]
  - HYPOAESTHESIA [None]
  - TOOTHACHE [None]
  - PURULENT DISCHARGE [None]
  - EXPOSED BONE IN JAW [None]
